FAERS Safety Report 18088056 (Version 4)
Quarter: 2020Q4

REPORT INFORMATION
  Report Type: Report from Study
  Country: None (occurrence: US)
  Receive Date: 20200729
  Receipt Date: 20201130
  Transmission Date: 20210113
  Serious: Yes (Hospitalization, Other)
  Sender: FDA-Public Use
  Company Number: US-ABBVIE-20K-163-3499254-00

PATIENT
  Sex: Female
  Weight: 48.58 kg

DRUGS (2)
  1. HUMIRA [Suspect]
     Active Substance: ADALIMUMAB
     Indication: CROHN^S DISEASE
     Route: 058
  2. HUMIRA [Suspect]
     Active Substance: ADALIMUMAB
     Indication: CROHN^S DISEASE
     Dosage: CITRATE FREE
     Route: 058

REACTIONS (6)
  - Abscess [Unknown]
  - Incorrect dose administered [Unknown]
  - Post procedural complication [Unknown]
  - Intestinal obstruction [Unknown]
  - Fistula [Unknown]
  - Weight decreased [Unknown]

NARRATIVE: CASE EVENT DATE: 2020
